FAERS Safety Report 9397293 (Version 1)
Quarter: 2013Q3

REPORT INFORMATION
  Report Type: Spontaneous
  Country: BR (occurrence: BR)
  Receive Date: 20130712
  Receipt Date: 20130712
  Transmission Date: 20140515
  Serious: Yes (Other)
  Sender: FDA-Public Use
  Company Number: BR-SANOFI-AVENTIS-2013SA068632

PATIENT
  Age: 72 Year
  Sex: Female
  Weight: 77 kg

DRUGS (10)
  1. LANTUS [Suspect]
     Indication: TYPE 2 DIABETES MELLITUS
     Route: 065
     Dates: start: 2005
  2. CLIKSTAR [Concomitant]
     Indication: DEVICE THERAPY
  3. ASPIRINA [Concomitant]
     Indication: ANTIPLATELET THERAPY
     Route: 048
     Dates: start: 2010
  4. LIPIBLOCK [Concomitant]
     Indication: BLOOD CHOLESTEROL
     Route: 048
  5. LIPIBLOCK [Concomitant]
     Indication: BLOOD TRIGLYCERIDES
     Route: 048
  6. LIPLESS [Concomitant]
     Indication: BLOOD CHOLESTEROL
     Route: 048
  7. GALVUS [Concomitant]
     Indication: TYPE 2 DIABETES MELLITUS
     Route: 048
  8. HUMALOG [Concomitant]
     Indication: TYPE 2 DIABETES MELLITUS
  9. AMLODIPINE/ATENOLOL [Concomitant]
     Indication: CARDIAC DISORDER
     Route: 048
     Dates: start: 2011
  10. AMLODIPINE/ATENOLOL [Concomitant]
     Indication: BLOOD PRESSURE
     Route: 048
     Dates: start: 2011

REACTIONS (2)
  - Nephrolithiasis [Recovered/Resolved]
  - Ear infection [Recovered/Resolved]
